FAERS Safety Report 8152455-7 (Version None)
Quarter: 2012Q1

REPORT INFORMATION
  Report Type: 
  Country: None (occurrence: None)
  Receive Date: 20120221
  Receipt Date: 20120209
  Transmission Date: 20120608
  Serious: Yes (Other)
  Sender: FDA-Public Use
  Company Number: CA-JNJFOC-20120205736

PATIENT
  Sex: Male
  Weight: 92 kg

DRUGS (4)
  1. REMICADE [Suspect]
     Indication: CROHN'S DISEASE
     Route: 042
     Dates: start: 20090101
  2. SEROQUEL [Concomitant]
     Route: 065
  3. CLONIDINE [Concomitant]
     Route: 065
  4. METHADONE HCL [Concomitant]
     Route: 065

REACTIONS (4)
  - ASTHENIA [None]
  - ARTHRALGIA [None]
  - FALL [None]
  - PAIN [None]
